FAERS Safety Report 18120491 (Version 2)
Quarter: 2020Q3

REPORT INFORMATION
  Report Type: Report from Study
  Country: None (occurrence: JP)
  Receive Date: 20200806
  Receipt Date: 20200808
  Transmission Date: 20201103
  Serious: No
  Sender: FDA-Public Use
  Company Number: JP-ABBVIE-20K-087-3513049-00

PATIENT
  Sex: Male

DRUGS (1)
  1. HUMIRA [Suspect]
     Active Substance: ADALIMUMAB
     Indication: PRODUCT USED FOR UNKNOWN INDICATION
     Route: 058

REACTIONS (5)
  - Arthralgia [Unknown]
  - Malaise [Unknown]
  - Erythema [Unknown]
  - Prostatic specific antigen increased [Unknown]
  - Pain in extremity [Unknown]
